FAERS Safety Report 8837446 (Version 1)
Quarter: 2012Q4

REPORT INFORMATION
  Report Type: 
  Country: US (occurrence: US)
  Receive Date: 20121012
  Receipt Date: 20121012
  Transmission Date: 20130627
  Serious: Yes (Other)
  Sender: FDA-Public Use
  Company Number: US-MYLANLABS-2012S1020597

PATIENT
  Sex: Female

DRUGS (1)
  1. ESTRADIOL TRANSDERMAL SYSTEM, USP [Suspect]
     Indication: HORMONE REPLACEMENT THERAPY
     Dosage: Changed qwk
     Route: 062

REACTIONS (2)
  - Deafness [Not Recovered/Not Resolved]
  - Condition aggravated [Not Recovered/Not Resolved]
